FAERS Safety Report 7177388-4 (Version None)
Quarter: 2010Q4

REPORT INFORMATION
  Report Type: 
  Country: None (occurrence: None)
  Receive Date: 20101220
  Receipt Date: 20101208
  Transmission Date: 20110411
  Serious: Yes (Hospitalization)
  Sender: FDA-Public Use
  Company Number: PHHO2010US18676

PATIENT
  Sex: Male
  Weight: 98.413 kg

DRUGS (18)
  1. AFINITOR [Suspect]
     Indication: PROSTATE CANCER
     Dosage: 2.5 MG
     Route: 048
     Dates: start: 20101102, end: 20101205
  2. DOCETAXEL [Suspect]
     Indication: PROSTATE CANCER
     Dosage: 75 MG/M2
     Route: 042
     Dates: start: 20101102, end: 20101201
  3. BEVACIZUMAB [Suspect]
     Indication: PROSTATE CANCER
     Dosage: 15 MG/KG
     Route: 042
     Dates: start: 20101102, end: 20101201
  4. JANUVIA [Concomitant]
  5. CLARITIN-D [Concomitant]
  6. ASPIRIN [Concomitant]
  7. NORVASC [Concomitant]
  8. LUPRON [Concomitant]
  9. COSAMIN [Concomitant]
  10. AVALLONE [Concomitant]
  11. VIAGRA [Concomitant]
  12. AMBIEN [Concomitant]
  13. SENNA [Concomitant]
  14. LANZOR [Concomitant]
  15. TYLENOL (CAPLET) [Concomitant]
  16. DECADRON [Concomitant]
  17. COMPAZINE [Concomitant]
  18. ZOFRAN [Concomitant]

REACTIONS (6)
  - ATELECTASIS [None]
  - CHILLS [None]
  - COUGH [None]
  - DYSPNOEA [None]
  - FEBRILE NEUTROPENIA [None]
  - PYREXIA [None]
